FAERS Safety Report 7099368-X (Version None)
Quarter: 2010Q4

REPORT INFORMATION
  Report Type: 
  Country: None (occurrence: None)
  Receive Date: 20101112
  Receipt Date: 20090523
  Transmission Date: 20110411
  Serious: No
  Sender: FDA-Public Use
  Company Number: US-KINGPHARMUSA00001-K200900643

PATIENT
  Sex: Male
  Weight: 108.84 kg

DRUGS (4)
  1. SKELAXIN [Suspect]
     Indication: PAIN IN EXTREMITY
     Dosage: 400 MG  MORNING AND NOON, 800 MG QPM
     Route: 048
     Dates: start: 20090523, end: 20090524
  2. IBUPROFEN [Concomitant]
     Indication: MUSCLE SPASMS
     Dosage: UNK
  3. IBUPROFEN [Concomitant]
     Indication: MYALGIA
  4. ZICAM [Concomitant]
     Indication: HYPERSENSITIVITY
     Dosage: UNK
     Route: 045

REACTIONS (4)
  - DRUG INEFFECTIVE [None]
  - HEADACHE [None]
  - INSOMNIA [None]
  - IRRITABILITY [None]
